FAERS Safety Report 10076962 (Version 3)
Quarter: 2014Q2

REPORT INFORMATION
  Report Type: Spontaneous
  Country: US (occurrence: US)
  Receive Date: 20140414
  Receipt Date: 20140605
  Transmission Date: 20141212
  Serious: No
  Sender: FDA-Public Use
  Company Number: US-PFIZER INC-2014103900

PATIENT
  Age: 44 Year
  Sex: Female
  Weight: 109 kg

DRUGS (4)
  1. ADVIL ALLERGY SINUS [Suspect]
     Indication: SNEEZING
     Dosage: 1 TABLET, EVERY FOUR HOURS
     Route: 048
     Dates: start: 20140409
  2. ADVIL ALLERGY SINUS [Suspect]
     Indication: NASAL CONGESTION
  3. ADVIL ALLERGY SINUS [Suspect]
     Indication: LACRIMATION INCREASED
  4. ADVIL ALLERGY SINUS [Suspect]
     Indication: RHINORRHOEA

REACTIONS (1)
  - Drug ineffective [Unknown]
